FAERS Safety Report 24036812 (Version 2)
Quarter: 2024Q3

REPORT INFORMATION
  Report Type: Spontaneous
  Country: US (occurrence: US)
  Receive Date: 20240701
  Receipt Date: 20240801
  Transmission Date: 20241016
  Serious: Yes (Other)
  Sender: BRISTOL MYERS SQUIBB
  Company Number: US-BRISTOL-MYERS SQUIBB COMPANY-2024-104436

PATIENT
  Age: 68 Year
  Sex: Male
  Weight: 72.57 kg

DRUGS (1)
  1. LENALIDOMIDE [Suspect]
     Active Substance: LENALIDOMIDE
     Indication: Plasma cell myeloma
     Dosage: DAILY ON DAYS 1-21, 14 DAYS OFF
     Route: 048
     Dates: start: 20240419

REACTIONS (2)
  - Bone disorder [Unknown]
  - Cancer pain [Recovering/Resolving]
